FAERS Safety Report 20611761 (Version 1)
Quarter: 2022Q1

REPORT INFORMATION
  Report Type: Spontaneous
  Country: US (occurrence: US)
  Receive Date: 20220318
  Receipt Date: 20220318
  Transmission Date: 20220424
  Serious: Yes (Other)
  Sender: FDA-Public Use
  Company Number: US-JNJFOC-20211128100

PATIENT
  Sex: Male

DRUGS (2)
  1. RISPERDAL [Suspect]
     Active Substance: RISPERIDONE
     Indication: Product used for unknown indication
     Dosage: 0.5 ML BY ORAL ROUTE IN MORNING AND 0.5 ML AT 3 PM
     Route: 048
     Dates: start: 20150616, end: 20170203
  2. RISPERDAL [Suspect]
     Active Substance: RISPERIDONE
     Dosage: AT BEDTIME
     Route: 048
     Dates: end: 20170719

REACTIONS (1)
  - Obesity [Recovering/Resolving]
